FAERS Safety Report 6962805-2 (Version None)
Quarter: 2010Q3

REPORT INFORMATION
  Report Type: 
  Country: None (occurrence: None)
  Receive Date: 20100823
  Receipt Date: 20100604
  Transmission Date: 20110219
  Serious: No
  Sender: FDA-Public Use
  Company Number: 013337

PATIENT
  Sex: Female
  Weight: 37.2 kg

DRUGS (4)
  1. CIMZIA [Suspect]
     Indication: CROHN'S DISEASE
     Dosage: (400 MG 1X/3 WEEKS SUBCUTANEOUS)
     Route: 058
     Dates: start: 20090701
  2. IRON [Concomitant]
  3. CALCIUM [Concomitant]
  4. VITAMIN D [Concomitant]

REACTIONS (2)
  - INSOMNIA [None]
  - NASAL CONGESTION [None]
